FAERS Safety Report 5216491-2 (Version None)
Quarter: 2006Q4

REPORT INFORMATION
  Report Type: 
  Country: None (occurrence: None)
  Receive Date: 20061129
  Receipt Date: 20040819
  Transmission Date: 20070319
  Serious: Yes (Other)
  Sender: FDA-Public Use
  Company Number: 2004UW17660

PATIENT
  Age: 40 Year
  Sex: Female

DRUGS (1)
  1. FASLODEX [Suspect]
     Dosage: 250 MG IM
     Route: 030

REACTIONS (1)
  - MEDICATION ERROR [None]
